FAERS Safety Report 12084763 (Version 2)
Quarter: 2016Q2

REPORT INFORMATION
  Report Type: Spontaneous
  Country: US (occurrence: US)
  Receive Date: 20160217
  Receipt Date: 20160420
  Transmission Date: 20160815
  Serious: Yes (Other)
  Sender: FDA-Public Use
  Company Number: US-BAYER-2016-028844

PATIENT
  Age: 52 Year
  Sex: Female
  Weight: 99.77 kg

DRUGS (2)
  1. GADAVIST [Suspect]
     Active Substance: GADOBUTROL
     Indication: UTERINE LEIOMYOMA
  2. GADAVIST [Suspect]
     Active Substance: GADOBUTROL
     Indication: NUCLEAR MAGNETIC RESONANCE IMAGING ABDOMINAL
     Dosage: 10 ML, ONCE
     Route: 042
     Dates: start: 20160206, end: 20160206

REACTIONS (5)
  - Anaphylactic reaction [None]
  - Throat tightness [Recovered/Resolved]
  - Dyspnoea [Recovered/Resolved]
  - Product use issue [None]
  - Sputum retention [Recovered/Resolved]

NARRATIVE: CASE EVENT DATE: 20160206
